FAERS Safety Report 7376130-1 (Version None)
Quarter: 2011Q1

REPORT INFORMATION
  Report Type: 
  Country: None (occurrence: None)
  Receive Date: 20110325
  Receipt Date: 20110318
  Transmission Date: 20110831
  Serious: Yes (Other)
  Sender: FDA-Public Use
  Company Number: US-PFIZER INC-2011059509

PATIENT
  Sex: Female
  Weight: 74 kg

DRUGS (3)
  1. FLOVENT [Concomitant]
     Indication: ASTHMA
     Dosage: UNK
  2. VENTOLIN [Concomitant]
     Indication: ASTHMA
     Dosage: UNK
  3. DEPO-MEDROL [Suspect]
     Indication: ASTHMA
     Dosage: 110 MG, UNK
     Dates: start: 20110201

REACTIONS (8)
  - BACK PAIN [None]
  - ERYTHEMA [None]
  - MILK ALLERGY [None]
  - PRURITUS [None]
  - BACK DISORDER [None]
  - HOUSE DUST ALLERGY [None]
  - URTICARIA [None]
  - SEASONAL ALLERGY [None]
